FAERS Safety Report 13279372 (Version 1)
Quarter: 2017Q1

REPORT INFORMATION
  Report Type: Report from Study
  Country: US (occurrence: US)
  Receive Date: 20170228
  Receipt Date: 20170228
  Transmission Date: 20170428
  Serious: No
  Sender: FDA-Public Use
  Company Number: US-AMAG PHARMACEUTICALS, INC.-AMAG201601097

PATIENT

DRUGS (3)
  1. MAKENA [Suspect]
     Active Substance: HYDROXYPROGESTERONE CAPROATE
     Indication: PRODUCT USED FOR UNKNOWN INDICATION
     Dosage: 250 MG, WEEKLY
     Route: 030
     Dates: start: 20160205, end: 20160602
  2. FERROUS SULFATE. [Concomitant]
     Active Substance: FERROUS SULFATE
     Indication: PRODUCT USED FOR UNKNOWN INDICATION
     Dosage: 325 MG, UNK
     Route: 065
     Dates: start: 20160505, end: 20160705
  3. PRENATAL VITAMINS [Concomitant]
     Active Substance: VITAMINS
     Indication: PREGNANCY
     Dosage: 27 MGR / 0.8 MG
     Route: 065
     Dates: start: 20151123, end: 20160705

REACTIONS (2)
  - Uterine contractions during pregnancy [Unknown]
  - Cervical incompetence [Unknown]

NARRATIVE: CASE EVENT DATE: 20160303
